FAERS Safety Report 5443315-0 (Version None)
Quarter: 2007Q3

REPORT INFORMATION
  Report Type: 
  Country: None (occurrence: None)
  Receive Date: 20070831
  Receipt Date: 20070816
  Transmission Date: 20080115
  Serious: Yes (Congenital Anomaly)
  Sender: FDA-Public Use
  Company Number: S07-SWI-03644-01

PATIENT
  Age: 37 Year
  Sex: Female

DRUGS (2)
  1. CITALOPRAM HYDROBROMIDE [Suspect]
     Dosage: 20 MG QD PO
     Route: 048
  2. TRUXAL (CHLORPROTHIXENE HYDROCHLORIDE) [Suspect]
     Dosage: 60 MG QD PO
     Route: 048

REACTIONS (14)
  - ABORTION INDUCED [None]
  - AMNIOTIC FLUID VOLUME INCREASED [None]
  - BREAST MALFORMATION [None]
  - CONGENITAL MUSCLE ABSENCE [None]
  - CONGENITAL SCOLIOSIS [None]
  - DRUG EXPOSURE DURING PREGNANCY [None]
  - ECHOGRAPHY ABNORMAL [None]
  - MOTOR NEURONE DISEASE [None]
  - MULTIPLE CONGENITAL ABNORMALITIES [None]
  - OEDEMA PERIPHERAL [None]
  - PECTUS EXCAVATUM [None]
  - PTERYGIUM [None]
  - RETROGNATHIA [None]
  - SPINE MALFORMATION [None]
